FAERS Safety Report 7967455-7 (Version None)
Quarter: 2011Q4

REPORT INFORMATION
  Report Type: 
  Country: None (occurrence: None)
  Receive Date: 20111209
  Receipt Date: 20110318
  Transmission Date: 20120403
  Serious: No
  Sender: FDA-Public Use
  Company Number: US-GLAXOSMITHKLINE-A0724611A

PATIENT
  Age: 45 Year
  Sex: Male
  Weight: 154.5 kg

DRUGS (6)
  1. AVANDIA [Suspect]
     Indication: TYPE 2 DIABETES MELLITUS
     Dosage: 4MG TWICE PER DAY
     Route: 048
     Dates: start: 20050619, end: 20051229
  2. METOPROLOL TARTRATE [Concomitant]
  3. ASPIRIN [Concomitant]
     Dosage: 81MG PER DAY
  4. ZIAC [Concomitant]
     Dosage: 10MG PER DAY
  5. AVANDAMET [Suspect]
     Indication: TYPE 2 DIABETES MELLITUS
     Dosage: 4MG TWICE PER DAY
     Route: 048
     Dates: start: 20040617, end: 20051111
  6. COZAAR [Concomitant]
     Dosage: 25MG PER DAY

REACTIONS (2)
  - OBESITY [None]
  - CARDIAC DISORDER [None]
